FAERS Safety Report 7897389-8 (Version None)
Quarter: 2011Q4

REPORT INFORMATION
  Report Type: 
  Country: None (occurrence: None)
  Receive Date: 20111107
  Receipt Date: 20111026
  Transmission Date: 20120403
  Serious: Yes (Death, Hospitalization)
  Sender: FDA-Public Use
  Company Number: JP-SANOFI-AVENTIS-200911545JP

PATIENT
  Age: 10 Month
  Sex: Male
  Weight: 8.5 kg

DRUGS (20)
  1. CEFOTAXIME SODIUM [Suspect]
     Route: 041
     Dates: start: 20081208, end: 20081220
  2. CEFDINIR [Concomitant]
     Dates: start: 20081129, end: 20081130
  3. MUCODYNE [Concomitant]
     Dates: start: 20081129, end: 20081130
  4. DEXTROMETHORPHAN HYDROBROMIDE [Concomitant]
     Indication: PAIN
     Route: 042
     Dates: start: 20081216, end: 20081216
  5. PERIACTIN [Concomitant]
     Dates: start: 20081129, end: 20081130
  6. OPIUM ALKALOIDS AND DERIVATIVES [Concomitant]
     Indication: BRONCHITIS
     Route: 048
     Dates: start: 20081202, end: 20081221
  7. POLYGAM S/D [Concomitant]
     Dates: start: 20081201, end: 20081209
  8. PIPERACILLIN [Suspect]
     Indication: BACTERIAL INFECTION
     Route: 065
  9. MUCODYNE [Concomitant]
     Indication: BRONCHITIS
     Route: 048
     Dates: start: 20081202, end: 20081221
  10. DEXAMETHASONE [Concomitant]
     Dates: start: 20081201, end: 20081209
  11. MEROPENEM [Concomitant]
     Route: 041
     Dates: start: 20081201, end: 20081205
  12. ESCRE [Concomitant]
     Indication: PAIN
     Route: 054
     Dates: start: 20081216, end: 20081216
  13. CEFOZOPRAN [Concomitant]
  14. CEFTRIAXONE [Concomitant]
     Dates: start: 20081201, end: 20081209
  15. MUCOSOLVAN [Concomitant]
     Indication: BRONCHITIS
     Route: 048
     Dates: start: 20081202, end: 20081221
  16. ASVERIN [Concomitant]
     Dates: start: 20081129, end: 20081130
  17. FAMOTIDINE [Concomitant]
     Route: 041
     Dates: start: 20080101, end: 20080101
  18. MIRACLID [Concomitant]
     Route: 041
     Dates: start: 20080101, end: 20080101
  19. ROCEPHIN [Concomitant]
     Route: 041
     Dates: start: 20081201, end: 20081208
  20. TEICOPLANIN [Concomitant]

REACTIONS (12)
  - HEPATITIS FULMINANT [None]
  - STRAWBERRY TONGUE [None]
  - ERYTHEMA [None]
  - PYREXIA [None]
  - GENERALISED ERYTHEMA [None]
  - ANAEMIA [None]
  - LYMPHADENOPATHY [None]
  - CONJUNCTIVAL HYPERAEMIA [None]
  - CONDITION AGGRAVATED [None]
  - EOSINOPHILIA [None]
  - HYPOPROTEINAEMIA [None]
  - DRUG RASH WITH EOSINOPHILIA AND SYSTEMIC SYMPTOMS [None]
